FAERS Safety Report 13973328 (Version 1)
Quarter: 2017Q3

REPORT INFORMATION
  Report Type: Spontaneous
  Country: US (occurrence: None)
  Receive Date: 20170831
  Receipt Date: 20170831
  Transmission Date: 20171128
  Serious: No
  Sender: FDA-Public Use
  Company Number: None

PATIENT
  Sex: Female
  Weight: 60.33 kg

DRUGS (4)
  1. TYLENOL [Concomitant]
     Active Substance: ACETAMINOPHEN
  2. MIRENA [Suspect]
     Active Substance: LEVONORGESTREL
     Dates: start: 20170829, end: 20170829
  3. ERRIN [Concomitant]
     Active Substance: NORETHINDRONE
  4. MOTRIN [Concomitant]
     Active Substance: IBUPROFEN

REACTIONS (6)
  - Discomfort [None]
  - Muscle spasms [None]
  - Haemorrhage [None]
  - Anxiety [None]
  - Uterine perforation [None]
  - Complication of device insertion [None]

NARRATIVE: CASE EVENT DATE: 20170829
